FAERS Safety Report 16631795 (Version 1)
Quarter: 2019Q3

REPORT INFORMATION
  Report Type: Spontaneous
  Country: US (occurrence: US)
  Receive Date: 20190725
  Receipt Date: 20190725
  Transmission Date: 20191004
  Serious: No
  Sender: FDA-Public Use
  Company Number: US-ABBVIE-19S-163-2686740-00

PATIENT
  Sex: Female

DRUGS (10)
  1. LEVOTHYROXINE. [Suspect]
     Active Substance: LEVOTHYROXINE
     Indication: PRODUCT USED FOR UNKNOWN INDICATION
     Route: 065
     Dates: start: 201301
  2. CORGARD [Suspect]
     Active Substance: NADOLOL
     Indication: MIGRAINE
     Route: 065
     Dates: start: 1994
  3. TYROSINE [Suspect]
     Active Substance: TYROSINE
     Route: 065
     Dates: start: 201404
  4. SYNTHROID [Suspect]
     Active Substance: LEVOTHYROXINE SODIUM
     Indication: PRODUCT USED FOR UNKNOWN INDICATION
     Route: 048
     Dates: end: 201404
  5. CYTOMEL [Suspect]
     Active Substance: LIOTHYRONINE SODIUM
     Route: 048
     Dates: start: 201406
  6. NADOLOL. [Suspect]
     Active Substance: NADOLOL
     Indication: MIGRAINE PROPHYLAXIS
     Route: 065
  7. TYROSINE [Suspect]
     Active Substance: TYROSINE
     Indication: PRODUCT USED FOR UNKNOWN INDICATION
     Route: 065
  8. CYTOMEL [Suspect]
     Active Substance: LIOTHYRONINE SODIUM
     Indication: PRODUCT USED FOR UNKNOWN INDICATION
     Route: 048
  9. LIOTHYRONINE [Suspect]
     Active Substance: LIOTHYRONINE
     Indication: TRI-IODOTHYRONINE
     Route: 065
  10. HYDROCHLOROTHIAZIDE. [Concomitant]
     Active Substance: HYDROCHLOROTHIAZIDE
     Indication: BLOOD PRESSURE MEASUREMENT
     Route: 065

REACTIONS (6)
  - Feeling abnormal [Unknown]
  - Gastrointestinal disorder [Unknown]
  - Malaise [Unknown]
  - Reaction to excipient [Unknown]
  - Dyspepsia [Unknown]
  - Palpitations [Unknown]
